FAERS Safety Report 5019335-7 (Version None)
Quarter: 2006Q2

REPORT INFORMATION
  Report Type: 
  Country: None (occurrence: None)
  Receive Date: 20060606
  Receipt Date: 20060214
  Transmission Date: 20061013
  Serious: Yes (Other)
  Sender: FDA-Public Use
  Company Number: JP-ROCHE-439038

PATIENT
  Age: 19 Year
  Sex: Female
  Weight: 40 kg

DRUGS (4)
  1. TAMIFLU [Suspect]
     Route: 048
     Dates: start: 20060201, end: 20060205
  2. MYSLEE [Concomitant]
     Route: 048
     Dates: start: 20050629
  3. DEPAS [Concomitant]
     Route: 048
     Dates: start: 20050629
  4. PA [Concomitant]
     Route: 048
     Dates: start: 20060201, end: 20060205

REACTIONS (2)
  - LOSS OF CONSCIOUSNESS [None]
  - SELF INJURIOUS BEHAVIOUR [None]
